FAERS Safety Report 4927759-9 (Version None)
Quarter: 2006Q1

REPORT INFORMATION
  Report Type: 
  Country: None (occurrence: None)
  Receive Date: 20060228
  Receipt Date: 20050323
  Transmission Date: 20060701
  Serious: No
  Sender: FDA-Public Use
  Company Number: US-GLAXOSMITHKLINE-A0551049A

PATIENT
  Age: 33 Year
  Sex: Male

DRUGS (2)
  1. ZIAGEN [Suspect]
     Indication: HIV INFECTION
     Route: 048
     Dates: start: 20020101, end: 20020101
  2. VIDEX [Concomitant]

REACTIONS (2)
  - ASTHENIA [None]
  - RASH [None]
